FAERS Safety Report 4498616-X (Version None)
Quarter: 2004Q4

REPORT INFORMATION
  Report Type: 
  Country: None (occurrence: None)
  Receive Date: 20041111
  Receipt Date: 20041021
  Transmission Date: 20050328
  Serious: Yes (Life-Threatening, Hospitalization, Other)
  Sender: FDA-Public Use
  Company Number: CA-JNJFOC-20041007136

PATIENT
  Sex: Female
  Weight: 73 kg

DRUGS (7)
  1. REMICADE [Suspect]
     Route: 042
  2. REMICADE [Suspect]
     Route: 042
  3. REMICADE [Suspect]
     Route: 042
  4. REMICADE [Suspect]
     Route: 042
  5. METHOTREXATE [Concomitant]
     Indication: CROHN'S DISEASE
     Route: 058
  6. PREDNISONE [Concomitant]
     Indication: CROHN'S DISEASE
  7. NARCOTIC ANALGESICS [Concomitant]
     Indication: CROHN'S DISEASE

REACTIONS (5)
  - ANAL FISTULA [None]
  - ARTHRALGIA [None]
  - ATAXIA [None]
  - SPEECH DISORDER [None]
  - TOOTH ABSCESS [None]
